FAERS Safety Report 10083728 (Version 1)
Quarter: 2014Q2

REPORT INFORMATION
  Report Type: Spontaneous
  Country: US (occurrence: US)
  Receive Date: 20140417
  Receipt Date: 20140417
  Transmission Date: 20141212
  Serious: No
  Sender: FDA-Public Use
  Company Number: US-PFIZER INC-2014107989

PATIENT
  Age: 55 Year
  Sex: Female
  Weight: 113.38 kg

DRUGS (5)
  1. CELEBREX [Suspect]
     Indication: ARTHRITIS
     Dosage: 200 MG, DAILY
  2. CELEBREX [Suspect]
     Indication: SPINAL COLUMN STENOSIS
  3. LANTUS [Concomitant]
     Indication: DIABETES MELLITUS
     Dosage: 80 IU, DAILY
  4. TOPROL XL [Concomitant]
     Indication: HYPERTENSION
     Dosage: 100 MG, DAILY
  5. ZOLOFT [Concomitant]
     Indication: DEPRESSION
     Dosage: 100 MG, DAILY

REACTIONS (3)
  - Spinal pain [Unknown]
  - Pain in extremity [Unknown]
  - Gait disturbance [Unknown]
